FAERS Safety Report 6326421-8 (Version None)
Quarter: 2009Q3

REPORT INFORMATION
  Report Type: 
  Country: None (occurrence: None)
  Receive Date: 20090825
  Receipt Date: 20090813
  Transmission Date: 20100115
  Serious: Yes (Death)
  Sender: FDA-Public Use
  Company Number: DE-BIOGENIDEC-2009BI025702

PATIENT
  Sex: Female

DRUGS (3)
  1. TYSABRI [Suspect]
     Indication: MULTIPLE SCLEROSIS
     Route: 042
     Dates: start: 20080109
  2. BACLOFEN [Concomitant]
     Indication: MUSCLE SPASTICITY
  3. SPASMEX [Concomitant]
     Indication: BLADDER DISORDER

REACTIONS (2)
  - HYPERHIDROSIS [None]
  - VOMITING [None]
